FAERS Safety Report 12456127 (Version 1)
Quarter: 2016Q2

REPORT INFORMATION
  Report Type: Report from Study
  Country: TW (occurrence: TW)
  Receive Date: 20160610
  Receipt Date: 20160610
  Transmission Date: 20160815
  Serious: Yes (Other)
  Sender: FDA-Public Use
  Company Number: TW-ABBVIE-16P-153-1645415-00

PATIENT

DRUGS (3)
  1. OMBITASVIR/PARITAPREVIR/RITONAVIR [Suspect]
     Active Substance: OMBITASVIR\PARITAPREVIR\RITONAVIR
     Indication: CHRONIC HEPATITIS C
     Route: 048
  2. RIBAVIRIN. [Concomitant]
     Active Substance: RIBAVIRIN
     Indication: CHRONIC HEPATITIS C
  3. DASABUVIR [Suspect]
     Active Substance: DASABUVIR
     Indication: CHRONIC HEPATITIS C
     Route: 048

REACTIONS (11)
  - Myoclonus [Unknown]
  - Myalgia [Unknown]
  - Rash [Unknown]
  - Depression [Unknown]
  - Dyspnoea [Unknown]
  - Insomnia [Unknown]
  - Palpitations [Unknown]
  - Hepatocellular carcinoma [Unknown]
  - Dysuria [Unknown]
  - Malaise [Unknown]
  - Asthenia [Unknown]
